FAERS Safety Report 4661122-3 (Version None)
Quarter: 2005Q2

REPORT INFORMATION
  Report Type: 
  Country: None (occurrence: None)
  Receive Date: 20050511
  Receipt Date: 20050428
  Transmission Date: 20051028
  Serious: Yes (Other)
  Sender: FDA-Public Use
  Company Number: 2005067601

PATIENT

DRUGS (1)
  1. METHYLPREDNISOLONE SODIUM SUCCINATE [Suspect]
     Indication: ILL-DEFINED DISORDER
     Dosage: 1 GRAM (1 D)
     Dates: start: 20050207

REACTIONS (1)
  - ANAPHYLACTIC REACTION [None]
